FAERS Safety Report 4263369-7 (Version None)
Quarter: 2004Q1

REPORT INFORMATION
  Report Type: 
  Country: None (occurrence: None)
  Receive Date: 20040105
  Receipt Date: 20011025
  Transmission Date: 20041129
  Serious: Yes (Life-Threatening, Hospitalization, Disabling)
  Sender: FDA-Public Use
  Company Number: WAES 01104491

PATIENT
  Age: 41 Year
  Sex: Female
  Weight: 50 kg

DRUGS (5)
  1. TYLENOL [Concomitant]
     Indication: HEADACHE
  2. TAVIST D [Concomitant]
     Indication: INFLUENZA
     Dates: start: 20010319
  3. AFRIN [Concomitant]
     Dates: start: 20010301
  4. VIOXX [Suspect]
     Route: 048
     Dates: start: 19991101, end: 20010601
  5. VIOXX [Suspect]
     Route: 048
     Dates: start: 20010601

REACTIONS (23)
  - ABDOMINAL PAIN UPPER [None]
  - ANXIETY [None]
  - ARTERITIS [None]
  - BLOOD PRESSURE FLUCTUATION [None]
  - CARDIAC MURMUR [None]
  - CARDIOVASCULAR DISORDER [None]
  - DISTURBANCE IN ATTENTION [None]
  - DYSPEPSIA [None]
  - FATIGUE [None]
  - FLATULENCE [None]
  - FUNGAL INFECTION [None]
  - HEADACHE [None]
  - HIGH DENSITY LIPOPROTEIN DECREASED [None]
  - HYPERCALCAEMIA [None]
  - HYPOAESTHESIA [None]
  - ISCHAEMIC STROKE [None]
  - NAUSEA [None]
  - OEDEMA [None]
  - PYREXIA [None]
  - RENAL FAILURE [None]
  - SUBARACHNOID HAEMORRHAGE [None]
  - VASCULAR RUPTURE [None]
  - VASCULITIS [None]
